FAERS Safety Report 19766723 (Version 2)
Quarter: 2021Q3

REPORT INFORMATION
  Report Type: Spontaneous
  Country: US (occurrence: US)
  Receive Date: 20210831
  Receipt Date: 20210924
  Transmission Date: 20211014
  Serious: Yes (Hospitalization)
  Sender: FDA-Public Use
  Company Number: US-ROCHE-2899865

PATIENT
  Sex: Female

DRUGS (2)
  1. RITUXAN [Suspect]
     Active Substance: RITUXIMAB
     Indication: RHEUMATOID ARTHRITIS
     Dosage: STRENGTH: 10 MG/ML, SINGLE DOSE VIAL (50 ML/VIAL)
     Route: 042
     Dates: start: 20200602
  2. RITUXAN [Suspect]
     Active Substance: RITUXIMAB
     Indication: SJOGREN^S SYNDROME

REACTIONS (3)
  - Off label use [Unknown]
  - Fluid overload [Recovered/Resolved]
  - Diarrhoea [Recovered/Resolved]
